FAERS Safety Report 4532008-X (Version None)
Quarter: 2004Q4

REPORT INFORMATION
  Report Type: 
  Country: None (occurrence: None)
  Receive Date: 20041217
  Receipt Date: 20030124
  Transmission Date: 20050328
  Serious: No
  Sender: FDA-Public Use
  Company Number: F04200400313

PATIENT
  Age: 63 Year
  Sex: Male

DRUGS (11)
  1. PLAVIX [Suspect]
     Indication: ATRIAL FIBRILLATION
     Dosage: 300 MG ONCE / 300 MG ONCE / 75 MG OD ORAL
     Route: 048
     Dates: start: 20030102, end: 20030102
  2. PLAVIX [Suspect]
     Indication: ATRIAL FIBRILLATION
     Dosage: 300 MG ONCE / 300 MG ONCE / 75 MG OD ORAL
     Route: 048
     Dates: start: 20030110, end: 20030110
  3. PLAVIX [Suspect]
     Indication: ATRIAL FIBRILLATION
     Dosage: 300 MG ONCE / 300 MG ONCE / 75 MG OD ORAL
     Route: 048
     Dates: start: 20030111, end: 20030115
  4. ASPIRIN [Suspect]
     Indication: ATRIAL FIBRILLATION
     Dosage: 300 MG OD / 300 MG OD ORAL
     Route: 048
     Dates: start: 20030102, end: 20030102
  5. ASPIRIN [Suspect]
     Indication: ATRIAL FIBRILLATION
     Dosage: 300 MG OD / 300 MG OD ORAL
     Route: 048
     Dates: start: 20030110, end: 20030115
  6. HEPARIN [Concomitant]
  7. METOPROLOL TARTRATE [Concomitant]
  8. SOTALOL HCL [Concomitant]
  9. AMIODARONE (AMIODARONE) [Concomitant]
  10. PROPOFOL [Concomitant]
  11. MIDAZOLAM HCL [Concomitant]

REACTIONS (4)
  - ATRIAL FIBRILLATION [None]
  - INTRACARDIAC THROMBUS [None]
  - PROCEDURAL COMPLICATION [None]
  - THERAPY NON-RESPONDER [None]
